FAERS Safety Report 15698574 (Version 1)
Quarter: 2018Q4

REPORT INFORMATION
  Report Type: Spontaneous
  Country: US (occurrence: US)
  Receive Date: 20181126
  Receipt Date: 20181126
  Transmission Date: 20190205
  Serious: Yes (Disabling)
  Sender: FDA-Public Use
  Company Number: None

PATIENT
  Age: 48 Year
  Sex: Female
  Weight: 56.25 kg

DRUGS (1)
  1. MULTIHANCE [Suspect]
     Active Substance: GADOBENATE DIMEGLUMINE

REACTIONS (10)
  - Paraesthesia [None]
  - Tremor [None]
  - Headache [None]
  - Drug level [None]
  - Neurological symptom [None]
  - Chronic fatigue syndrome [None]
  - Arthralgia [None]
  - Toxicity to various agents [None]
  - Bone pain [None]
  - Muscle spasms [None]
